FAERS Safety Report 8872304 (Version 1)
Quarter: 2012Q4

REPORT INFORMATION
  Report Type: 
  Country: CA (occurrence: CA)
  Receive Date: 20121029
  Receipt Date: 20121029
  Transmission Date: 20130627
  Serious: Yes (Other)
  Sender: FDA-Public Use
  Company Number: PHMT2005CA00539

PATIENT
  Age: 61 Year
  Sex: Female

DRUGS (6)
  1. SANDOSTATIN LAR [Suspect]
     Indication: COLON CANCER
     Dosage: 20 mg, every 4 weeks
     Dates: start: 20050520
  2. SANDOSTATIN LAR [Suspect]
     Dosage: 20 mg every 3 weeks
     Route: 030
  3. ATIVAN [Concomitant]
  4. OXYCONTIN [Concomitant]
  5. PANTOLOC ^SOLVAY^ [Concomitant]
  6. ZOFRAN [Concomitant]

REACTIONS (5)
  - Blood pressure decreased [Unknown]
  - Urinary tract infection [Unknown]
  - Device related infection [Unknown]
  - Nausea [Not Recovered/Not Resolved]
  - Fatigue [Unknown]
